FAERS Safety Report 5820407-5 (Version None)
Quarter: 2008Q3

REPORT INFORMATION
  Report Type: 
  Country: None (occurrence: None)
  Receive Date: 20080724
  Receipt Date: 20070702
  Transmission Date: 20090109
  Serious: No
  Sender: FDA-Public Use
  Company Number: A0661310A

PATIENT
  Age: 60 Year
  Sex: Male

DRUGS (4)
  1. AVANDIA [Suspect]
     Dosage: 4MG TWICE PER DAY
     Route: 048
     Dates: start: 20060101, end: 20070630
  2. ACTOS [Concomitant]
  3. CRESTOR [Concomitant]
  4. DIOVAN [Concomitant]

REACTIONS (1)
  - ELECTROCARDIOGRAM ABNORMAL [None]
